FAERS Safety Report 18254582 (Version 1)
Quarter: 2020Q3

REPORT INFORMATION
  Report Type: Report from Study
  Country: None (occurrence: US)
  Receive Date: 20200911
  Receipt Date: 20200911
  Transmission Date: 20201103
  Serious: Yes (Other)
  Sender: FDA-Public Use
  Company Number: US-ABBVIE-20K-163-3461285-00

PATIENT
  Age: 61 Year
  Sex: Female

DRUGS (2)
  1. HUMIRA [Suspect]
     Active Substance: ADALIMUMAB
     Indication: RHEUMATOID ARTHRITIS
     Route: 058
     Dates: start: 20200522, end: 2020
  2. HUMIRA [Suspect]
     Active Substance: ADALIMUMAB
     Route: 058
     Dates: start: 20200828

REACTIONS (22)
  - Acne [Unknown]
  - Paraesthesia [Unknown]
  - Joint swelling [Recovering/Resolving]
  - Joint stiffness [Recovering/Resolving]
  - Injection site erythema [Unknown]
  - Peripheral swelling [Recovering/Resolving]
  - Pain in extremity [Recovering/Resolving]
  - Urine output increased [Unknown]
  - Chest pain [Unknown]
  - Walking aid user [Unknown]
  - Musculoskeletal stiffness [Recovering/Resolving]
  - Meniscus injury [Unknown]
  - Peripheral swelling [Unknown]
  - Fatigue [Unknown]
  - Vision blurred [Recovered/Resolved]
  - Arthralgia [Unknown]
  - Rash [Unknown]
  - Injection site pruritus [Unknown]
  - Night sweats [Recovering/Resolving]
  - Hypoaesthesia [Unknown]
  - Gait disturbance [Unknown]
  - Arthralgia [Recovering/Resolving]

NARRATIVE: CASE EVENT DATE: 2020
